FAERS Safety Report 24290766 (Version 1)
Quarter: 2024Q3

REPORT INFORMATION
  Report Type: Spontaneous
  Country: US (occurrence: US)
  Receive Date: 20240906
  Receipt Date: 20240906
  Transmission Date: 20241017
  Serious: Yes (Other)
  Sender: UNITED THERAPEUTICS
  Company Number: US-UNITED THERAPEUTICS-UNT-2024-027358

PATIENT
  Age: 15 Year
  Sex: Male
  Weight: 46.4 kg

DRUGS (58)
  1. UNITUXIN [Suspect]
     Active Substance: DINUTUXIMAB
     Indication: Neuroblastoma
     Dosage: UNK, CYCLICAL (RECEIVED 5 CYCLES)
     Route: 041
  2. UNITUXIN [Suspect]
     Active Substance: DINUTUXIMAB
     Dosage: UNK, CYCLICAL (RECEIVED 2 CYCLES)
     Route: 041
  3. UNITUXIN [Suspect]
     Active Substance: DINUTUXIMAB
     Dosage: UNK, CYCLICAL (RECEIVED 4 CYCLES)
     Route: 041
  4. UNITUXIN [Suspect]
     Active Substance: DINUTUXIMAB
     Dosage: UNK, CYCLICAL (RECEIVED 3 CYCLES)
     Route: 041
  5. UNITUXIN [Suspect]
     Active Substance: DINUTUXIMAB
     Dosage: UNK, CYCLICAL (RECEIVED 2 CYCLES)
     Route: 041
  6. UNITUXIN [Suspect]
     Active Substance: DINUTUXIMAB
     Dosage: UNK, CYCLICAL (RECEIVED 4 CYCLES)
     Route: 041
  7. UNITUXIN [Suspect]
     Active Substance: DINUTUXIMAB
     Dosage: UNK, CYCLICAL (RECEIVED 6 CYCLES)
     Route: 041
  8. UNITUXIN [Suspect]
     Active Substance: DINUTUXIMAB
     Dosage: UNK, CYCLICAL (RECEIVED 8 CYCLES)
     Route: 041
     Dates: start: 20220330, end: 20221008
  9. UNITUXIN [Suspect]
     Active Substance: DINUTUXIMAB
     Dosage: UNK, CYCLICAL
     Route: 041
  10. CYCLOPHOSPHAMIDE [Suspect]
     Active Substance: CYCLOPHOSPHAMIDE
     Indication: Neuroblastoma
     Dosage: UNK, CYCLICAL (RECEIVED 2 CYCLES)
  11. CYCLOPHOSPHAMIDE [Suspect]
     Active Substance: CYCLOPHOSPHAMIDE
     Indication: Antibody test positive
     Dosage: UNK, CYCLICAL
  12. CYCLOPHOSPHAMIDE [Suspect]
     Active Substance: CYCLOPHOSPHAMIDE
     Dosage: UNK, CYCLICAL (RECEIVED 2 CYCLES)
  13. CYCLOPHOSPHAMIDE [Suspect]
     Active Substance: CYCLOPHOSPHAMIDE
     Dosage: UNK, CYCLICAL (RECEIVED 2 CYCLES)
     Dates: start: 20221031, end: 20221202
  14. CYCLOPHOSPHAMIDE [Suspect]
     Active Substance: CYCLOPHOSPHAMIDE
     Dosage: UNK, CYCLICAL
  15. TOPOTECAN [Suspect]
     Active Substance: TOPOTECAN HYDROCHLORIDE
     Indication: Neuroblastoma
     Dosage: UNK, CYCLICAL (RECEIVED 2 CYCLES)
  16. TOPOTECAN [Suspect]
     Active Substance: TOPOTECAN HYDROCHLORIDE
     Dosage: UNK, CYCLICAL (RECEIVED 2 CYCLES)
  17. TOPOTECAN [Suspect]
     Active Substance: TOPOTECAN HYDROCHLORIDE
     Dosage: UNK, CYCLICAL (RECEIVED 2 CYCLES)
     Dates: start: 20221031, end: 20221202
  18. TOPOTECAN [Suspect]
     Active Substance: TOPOTECAN HYDROCHLORIDE
     Dosage: UNK, CYCLICAL
  19. ALDESLEUKIN [Concomitant]
     Active Substance: ALDESLEUKIN
     Indication: Neuroblastoma
     Dosage: UNK, CYCLICAL (RECEIVED 5 CYCLES)
  20. GRANULOCYTE COLONY-STIMULATING FACTOR NOS [Concomitant]
     Active Substance: GRANULOCYTE COLONY-STIMULATING FACTOR NOS
     Indication: Neuroblastoma
     Dosage: UNK, CYCLICAL (RECEIVED 5 CYCLES)
  21. GRANULOCYTE COLONY-STIMULATING FACTOR NOS [Concomitant]
     Active Substance: GRANULOCYTE COLONY-STIMULATING FACTOR NOS
     Dosage: UNK, CYCLICAL (RECEIVED 2 CYCLES)
  22. GRANULOCYTE COLONY-STIMULATING FACTOR NOS [Concomitant]
     Active Substance: GRANULOCYTE COLONY-STIMULATING FACTOR NOS
     Dosage: UNK, CYCLICAL (RECEIVED 4 CYCLES)
  23. GRANULOCYTE COLONY-STIMULATING FACTOR NOS [Concomitant]
     Active Substance: GRANULOCYTE COLONY-STIMULATING FACTOR NOS
     Dosage: UNK, CYCLICAL (RECEIVED 2 CYCLES)
  24. GRANULOCYTE COLONY-STIMULATING FACTOR NOS [Concomitant]
     Active Substance: GRANULOCYTE COLONY-STIMULATING FACTOR NOS
     Dosage: UNK, CYCLICAL (RECEIVED 4 CYCLES)
  25. GRANULOCYTE COLONY-STIMULATING FACTOR NOS [Concomitant]
     Active Substance: GRANULOCYTE COLONY-STIMULATING FACTOR NOS
     Dosage: UNK, CYCLICAL (RECEIVED 8 CYCLES)
     Dates: start: 20220330, end: 20221008
  26. GRANULOCYTE COLONY-STIMULATING FACTOR NOS [Concomitant]
     Active Substance: GRANULOCYTE COLONY-STIMULATING FACTOR NOS
     Dosage: UNK, CYCLICAL (RECEIVED 8 CYCLES)
  27. ISOTRETINOIN [Concomitant]
     Active Substance: ISOTRETINOIN
     Indication: Neuroblastoma
     Dosage: UNK, CYCLICAL (RECEIVED 5 CYCLES)
  28. ISOTRETINOIN [Concomitant]
     Active Substance: ISOTRETINOIN
     Dosage: UNK
  29. VINCRISTINE SULFATE [Concomitant]
     Active Substance: VINCRISTINE SULFATE
     Indication: Neuroblastoma
     Dosage: UNK, CYCLICAL (RECEIVED 2 CYCLES)
  30. IFOSFAMIDE [Concomitant]
     Active Substance: IFOSFAMIDE
     Indication: Neuroblastoma
     Dosage: UNK, CYCLICAL (RECEIVED 1 CYCLE)
  31. IFOSFAMIDE [Concomitant]
     Active Substance: IFOSFAMIDE
     Dosage: UNK, CYCLICAL (RECEIVED 1 CYCLE OF LOW DOSE)
  32. ETOPOSIDE [Concomitant]
     Active Substance: ETOPOSIDE
     Indication: Neuroblastoma
     Dosage: UNK, CYCLICAL (RECEIVED 1 CYCLE)
  33. ETOPOSIDE [Concomitant]
     Active Substance: ETOPOSIDE
     Dosage: UNK, CYCLICAL (RECEIVED 1 CYCLE OF LOW DOSE)
  34. CARBOPLATIN [Concomitant]
     Active Substance: CARBOPLATIN
     Indication: Neuroblastoma
     Dosage: UNK, CYCLICAL (RECEIVED 1 CYCLE)
  35. CARBOPLATIN [Concomitant]
     Active Substance: CARBOPLATIN
     Dosage: UNK, CYCLICAL (RECEIVED 1 CYCLE OF LOW DOSE)
  36. IRINOTECAN HYDROCHLORIDE [Concomitant]
     Active Substance: IRINOTECAN HYDROCHLORIDE
     Indication: Neuroblastoma
     Dosage: UNK, CYCLICAL
  37. IRINOTECAN HYDROCHLORIDE [Concomitant]
     Active Substance: IRINOTECAN HYDROCHLORIDE
     Dosage: UNK, CYCLICAL
  38. IRINOTECAN HYDROCHLORIDE [Concomitant]
     Active Substance: IRINOTECAN HYDROCHLORIDE
     Dosage: UNK, CYCLICAL (RECEIVED 2 CYCLES)
  39. IRINOTECAN HYDROCHLORIDE [Concomitant]
     Active Substance: IRINOTECAN HYDROCHLORIDE
     Dosage: UNK, CYCLICAL (RECEIVED 1 CYCLE)
  40. IRINOTECAN HYDROCHLORIDE [Concomitant]
     Active Substance: IRINOTECAN HYDROCHLORIDE
     Dosage: UNK, CYCLICAL (RECEIVED 2 CYCLES)
  41. IRINOTECAN HYDROCHLORIDE [Concomitant]
     Active Substance: IRINOTECAN HYDROCHLORIDE
     Dosage: UNK, CYCLICAL (RECEIVED 4 CYCLES)
  42. IRINOTECAN HYDROCHLORIDE [Concomitant]
     Active Substance: IRINOTECAN HYDROCHLORIDE
     Dosage: UNK, CYCLICAL (RECEIVED 2 CYCLES)
  43. IRINOTECAN HYDROCHLORIDE [Concomitant]
     Active Substance: IRINOTECAN HYDROCHLORIDE
     Dosage: UNK, CYCLICAL (RECEIVED 4 CYCLES)
  44. IRINOTECAN HYDROCHLORIDE [Concomitant]
     Active Substance: IRINOTECAN HYDROCHLORIDE
     Dosage: UNK, CYCLICAL (RECEIVED 8 CYCLES)
  45. IRINOTECAN HYDROCHLORIDE [Concomitant]
     Active Substance: IRINOTECAN HYDROCHLORIDE
     Dosage: UNK, CYCLICAL
  46. TEMOZOLOMIDE [Concomitant]
     Active Substance: TEMOZOLOMIDE
     Indication: Neuroblastoma
     Dosage: UNK, CYCLICAL
  47. TEMOZOLOMIDE [Concomitant]
     Active Substance: TEMOZOLOMIDE
     Dosage: UNK, CYCLICAL (RECEIVED 2 CYCLES)
  48. TEMOZOLOMIDE [Concomitant]
     Active Substance: TEMOZOLOMIDE
     Dosage: UNK, CYCLICAL (RECEIVED 4 CYCLES)
  49. TEMOZOLOMIDE [Concomitant]
     Active Substance: TEMOZOLOMIDE
     Dosage: UNK, CYCLICAL (RECEIVED 2 CYCLES)
  50. TEMOZOLOMIDE [Concomitant]
     Active Substance: TEMOZOLOMIDE
     Dosage: UNK, CYCLICAL (RECEIVED 4 CYCLES)
  51. TEMOZOLOMIDE [Concomitant]
     Active Substance: TEMOZOLOMIDE
     Dosage: UNK, CYCLICAL (RECEIVED 8 CYCLES)
  52. TEMOZOLOMIDE [Concomitant]
     Active Substance: TEMOZOLOMIDE
     Dosage: UNK, CYCLICAL
  53. NAXITAMAB [Concomitant]
     Active Substance: NAXITAMAB
     Indication: Neuroblastoma
     Dosage: UNK, CYCLICAL (RECEIVED 8 CYCLES)
  54. VORINOSTAT [Concomitant]
     Active Substance: VORINOSTAT
     Indication: Neuroblastoma
     Dosage: UNK, CYCLICAL (CYCLE 1)
  55. VORINOSTAT [Concomitant]
     Active Substance: VORINOSTAT
     Dosage: UNK, CYCLICAL (CYCLE 2)
     Dates: start: 20231115, end: 20231128
  56. RITUXIMAB [Concomitant]
     Active Substance: RITUXIMAB
     Indication: Antibody test positive
     Dosage: UNK, CYCLICAL
  57. IOBENGUANE I-131 [Concomitant]
     Active Substance: IOBENGUANE I-131
     Indication: Neuroblastoma
     Dosage: UNK, CYCLICAL
  58. IOBENGUANE I-131 [Concomitant]
     Active Substance: IOBENGUANE I-131
     Dosage: UNK [18 MCI], CYCLICAL

REACTIONS (8)
  - Neuroblastoma recurrent [Not Recovered/Not Resolved]
  - Clostridium difficile colitis [Unknown]
  - Posterior reversible encephalopathy syndrome [Unknown]
  - Myelodysplastic syndrome [Unknown]
  - Hydronephrosis [Recovered/Resolved]
  - Ureteric stenosis [Recovered/Resolved]
  - Human anti-mouse antibody positive [Unknown]
  - Antibody test positive [Unknown]

NARRATIVE: CASE EVENT DATE: 20121101
